FAERS Safety Report 9184628 (Version 1)
Quarter: 2013Q1

REPORT INFORMATION
  Report Type: Spontaneous
  Country: US (occurrence: US)
  Receive Date: 20130324
  Receipt Date: 20130324
  Transmission Date: 20140127
  Serious: Yes (Other)
  Sender: FDA-Public Use
  Company Number: US-SANOFI-AVENTIS-2013SA027698

PATIENT
  Age: 84 Year
  Sex: Male

DRUGS (2)
  1. LOVENOX [Suspect]
     Indication: THROMBOSIS PROPHYLAXIS
     Route: 051
     Dates: start: 20130215, end: 20130224
  2. LANTUS [Suspect]
     Route: 051

REACTIONS (4)
  - Haemorrhage [Unknown]
  - Overdose [Unknown]
  - Vascular dementia [Unknown]
  - Weight decreased [Unknown]
